FAERS Safety Report 4442455-2 (Version None)
Quarter: 2004Q3

REPORT INFORMATION
  Report Type: 
  Country: None (occurrence: None)
  Receive Date: 20040903
  Receipt Date: 20040706
  Transmission Date: 20050211
  Serious: Yes (Other)
  Sender: FDA-Public Use
  Company Number: 2004UW13931

PATIENT
  Age: 69 Year
  Sex: Male
  Weight: 78.4723 kg

DRUGS (4)
  1. CRESTOR [Suspect]
     Indication: HYPERCHOLESTEROLAEMIA
     Dosage: 10 MG QD PO
     Route: 048
  2. PYRIDIUM [Concomitant]
  3. ATIVAN [Concomitant]
  4. ZYPREXA [Concomitant]

REACTIONS (2)
  - DYSURIA [None]
  - MUSCLE SPASMS [None]
